FAERS Safety Report 15744030 (Version 1)
Quarter: 2018Q4

REPORT INFORMATION
  Report Type: Spontaneous
  Country: IL (occurrence: IL)
  Receive Date: 20181220
  Receipt Date: 20181220
  Transmission Date: 20190205
  Serious: Yes (Life-Threatening)
  Sender: FDA-Public Use
  Company Number: IL-TEVA-2018-IL-991100

PATIENT
  Age: 85 Year
  Sex: Female

DRUGS (11)
  1. AEROVENT [Concomitant]
  2. FUSID [FUROSEMIDE] [Concomitant]
     Active Substance: FUROSEMIDE
  3. MUCOMYST [Concomitant]
     Active Substance: ACETYLCYSTEINE
  4. PREDNISONE. [Concomitant]
     Active Substance: PREDNISONE
  5. RAMIPRIL TEVA 5 MG [Suspect]
     Active Substance: RAMIPRIL
     Indication: HYPERTENSION
     Route: 065
  6. SEROXAT [Concomitant]
     Active Substance: PAROXETINE HYDROCHLORIDE
  7. PLAVIX [Concomitant]
     Active Substance: CLOPIDOGREL BISULFATE
  8. ASPIRIN. [Concomitant]
     Active Substance: ASPIRIN
  9. ATORVASTATIN [Concomitant]
     Active Substance: ATORVASTATIN
  10. DOPICAR [Concomitant]
     Active Substance: CARBIDOPA\LEVODOPA
  11. OMEPRADEX [Concomitant]
     Active Substance: OMEPRAZOLE

REACTIONS (3)
  - Swelling face [Recovering/Resolving]
  - Angioedema [Unknown]
  - Swollen tongue [Recovering/Resolving]
